FAERS Safety Report 4486129-0 (Version None)
Quarter: 2004Q4

REPORT INFORMATION
  Report Type: 
  Country: None (occurrence: None)
  Receive Date: 20041021
  Receipt Date: 20041005
  Transmission Date: 20050328
  Serious: No
  Sender: FDA-Public Use
  Company Number: A04200400946

PATIENT
  Age: 41 Year
  Sex: Female

DRUGS (1)
  1. FORTRAL - (PENTAZOCINE) - CAPSULE - 50 MG [Suspect]
     Dosage: ORAL
     Route: 048

REACTIONS (2)
  - ANGIONEUROTIC OEDEMA [None]
  - RASH [None]
